FAERS Safety Report 19742876 (Version 2)
Quarter: 2022Q3

REPORT INFORMATION
  Report Type: Report from Study
  Country: JP (occurrence: JP)
  Receive Date: 20210825
  Receipt Date: 20220713
  Transmission Date: 20221027
  Serious: Yes (Hospitalization, Other)
  Sender: FDA-Public Use
  Company Number: JP-GLAXOSMITHKLINE-JP2020JPN009137

PATIENT

DRUGS (46)
  1. MEPOLIZUMAB [Suspect]
     Active Substance: MEPOLIZUMAB
     Indication: Eosinophilic granulomatosis with polyangiitis
     Dosage: 300 MG
     Route: 058
     Dates: start: 20190904, end: 20190904
  2. MEPOLIZUMAB [Suspect]
     Active Substance: MEPOLIZUMAB
     Dosage: 300 MG
     Route: 058
     Dates: start: 20191002, end: 20191002
  3. MEPOLIZUMAB [Suspect]
     Active Substance: MEPOLIZUMAB
     Dosage: 300 MG
     Route: 058
     Dates: start: 20191101, end: 20191101
  4. MEPOLIZUMAB [Suspect]
     Active Substance: MEPOLIZUMAB
     Dosage: 300 MG
     Route: 058
     Dates: start: 20191206, end: 20191206
  5. MEPOLIZUMAB [Suspect]
     Active Substance: MEPOLIZUMAB
     Dosage: 300 MG
     Route: 058
     Dates: start: 20200110, end: 20200110
  6. MEPOLIZUMAB [Suspect]
     Active Substance: MEPOLIZUMAB
     Dosage: 300 MG
     Route: 058
     Dates: start: 20200207, end: 20200207
  7. MEPOLIZUMAB [Suspect]
     Active Substance: MEPOLIZUMAB
     Dosage: 300 MG
     Route: 058
     Dates: start: 20200306, end: 20200306
  8. MEPOLIZUMAB [Suspect]
     Active Substance: MEPOLIZUMAB
     Dosage: 300 MG
     Route: 058
     Dates: start: 20200403, end: 20200403
  9. MEPOLIZUMAB [Suspect]
     Active Substance: MEPOLIZUMAB
     Dosage: 300 MG
     Route: 058
     Dates: start: 20200501, end: 20200501
  10. MEPOLIZUMAB [Suspect]
     Active Substance: MEPOLIZUMAB
     Dosage: 300 MG
     Route: 058
     Dates: start: 20200605, end: 20200605
  11. MEPOLIZUMAB [Suspect]
     Active Substance: MEPOLIZUMAB
     Dosage: 300 MG
     Route: 058
     Dates: start: 20200710, end: 20200710
  12. MEPOLIZUMAB [Suspect]
     Active Substance: MEPOLIZUMAB
     Dosage: 300 MG
     Route: 058
     Dates: start: 20200807, end: 20200807
  13. ATOVAQUONE [Suspect]
     Active Substance: ATOVAQUONE
     Indication: Infection prophylaxis
     Dosage: 10 ML, QD
     Route: 048
     Dates: start: 20190906, end: 20191015
  14. ATOVAQUONE [Suspect]
     Active Substance: ATOVAQUONE
     Dosage: 10 ML, QD
     Route: 048
     Dates: start: 20191029, end: 20191108
  15. PREDONINE [Suspect]
     Active Substance: PREDNISOLONE
     Indication: Eosinophilic granulomatosis with polyangiitis
     Dosage: 60 MG, 1D
     Route: 048
     Dates: end: 20190815
  16. PREDONINE [Suspect]
     Active Substance: PREDNISOLONE
     Dosage: 55 MG, 1D
     Route: 048
     Dates: start: 20190816, end: 20190905
  17. PREDONINE [Suspect]
     Active Substance: PREDNISOLONE
     Dosage: 45 MG, 1D
     Route: 048
     Dates: start: 20190906, end: 20190919
  18. PREDONINE [Suspect]
     Active Substance: PREDNISOLONE
     Dosage: 35 MG, 1D
     Route: 048
     Dates: start: 20190920, end: 20191003
  19. PREDONINE [Suspect]
     Active Substance: PREDNISOLONE
     Dosage: 25 MG, 1D
     Route: 048
     Dates: start: 20191004, end: 20191031
  20. PREDONINE [Suspect]
     Active Substance: PREDNISOLONE
     Dosage: 20 MG, 1D
     Route: 048
     Dates: start: 20191101, end: 20191206
  21. PREDONINE [Suspect]
     Active Substance: PREDNISOLONE
     Dosage: 15 MG, 1D
     Route: 048
     Dates: start: 20191207, end: 20200501
  22. PREDONINE [Suspect]
     Active Substance: PREDNISOLONE
     Dosage: 10 MG, 1D
     Route: 048
     Dates: start: 20200502, end: 20200710
  23. PREDONINE [Suspect]
     Active Substance: PREDNISOLONE
     Dosage: 12.5 MG, 1D
     Route: 048
     Dates: start: 20200711, end: 20200807
  24. PREDONINE [Suspect]
     Active Substance: PREDNISOLONE
     Dosage: 10 MG, 1D
     Route: 048
     Dates: start: 20200808
  25. PREDNISOLONE [Concomitant]
     Active Substance: PREDNISOLONE
     Indication: Eosinophilic granulomatosis with polyangiitis
     Dosage: 4 MG, 1D
     Dates: start: 20191207, end: 20200110
  26. PREDNISOLONE [Concomitant]
     Active Substance: PREDNISOLONE
     Dosage: 3 MG, 1D
     Dates: start: 20200111, end: 20200207
  27. PREDNISOLONE [Concomitant]
     Active Substance: PREDNISOLONE
     Dosage: 2 MG, 1D
     Dates: start: 20200208, end: 20200306
  28. PREDNISOLONE [Concomitant]
     Active Substance: PREDNISOLONE
     Dosage: 1 MG, 1D
     Dates: start: 20200307, end: 20200403
  29. PREDNISOLONE [Concomitant]
     Active Substance: PREDNISOLONE
     Dosage: 4 MG, 1D
     Dates: start: 20200502, end: 20200605
  30. PREDNISOLONE [Concomitant]
     Active Substance: PREDNISOLONE
     Dosage: 3 MG, 1D
     Dates: start: 20200606, end: 20200710
  31. PREDNISOLONE [Concomitant]
     Active Substance: PREDNISOLONE
     Dosage: 2 MG, 1D
     Dates: start: 20200808
  32. SYMBICORT [Concomitant]
     Active Substance: BUDESONIDE\FORMOTEROL FUMARATE DIHYDRATE
     Dosage: 320 ?G, 1D
     Dates: end: 20201205
  33. SYMBICORT [Concomitant]
     Active Substance: BUDESONIDE\FORMOTEROL FUMARATE DIHYDRATE
     Dosage: 640 ?G, 1D
     Dates: start: 20201206
  34. KENKETSU VENILON-I [Concomitant]
     Active Substance: HUMAN IMMUNOGLOBULIN G
     Indication: Eosinophilic granulomatosis with polyangiitis
     Dosage: 20000 MG, 1D
     Dates: start: 20190924, end: 20190928
  35. SINGULAIR [Concomitant]
     Active Substance: MONTELUKAST SODIUM
     Dosage: UNK
  36. BILASTINE [Concomitant]
     Active Substance: BILASTINE
     Dosage: UNK
  37. FAMOTIDINE [Concomitant]
     Active Substance: FAMOTIDINE
     Indication: Gastritis prophylaxis
     Dosage: UNK
  38. BONALON [Concomitant]
     Active Substance: ALENDRONATE SODIUM
     Indication: Osteoporosis prophylaxis
     Dosage: UNK
  39. EDOXABAN TOSYLATE [Concomitant]
     Active Substance: EDOXABAN TOSYLATE
     Dosage: UNK
  40. POTASSIUM ASPARTATE [Concomitant]
     Active Substance: POTASSIUM ASPARTATE
     Dosage: UNK
  41. RABEPRAZOLE SODIUM [Concomitant]
     Active Substance: RABEPRAZOLE SODIUM
     Indication: Gastritis prophylaxis
     Dosage: UNK
  42. NOVORAPID INJECTION [Concomitant]
     Dosage: UNK
  43. IMURAN [Concomitant]
     Active Substance: AZATHIOPRINE
     Indication: Eosinophilic granulomatosis with polyangiitis
     Dosage: 50 MG
     Dates: start: 20200208, end: 20200403
  44. BENAMBAX (PENTAMIDINE ISETHIONATE) [Concomitant]
  45. ALBUTEROL [Concomitant]
     Active Substance: ALBUTEROL
  46. MITIGLINIDE [Concomitant]
     Active Substance: MITIGLINIDE

REACTIONS (3)
  - Hepatic function abnormal [Recovered/Resolved]
  - Glycosylated haemoglobin increased [Recovered/Resolved]
  - Glaucoma [Recovered/Resolved]

NARRATIVE: CASE EVENT DATE: 20190927
